FAERS Safety Report 5177734-7 (Version None)
Quarter: 2006Q4

REPORT INFORMATION
  Report Type: 
  Country: None (occurrence: None)
  Receive Date: 20061208
  Receipt Date: 20061127
  Transmission Date: 20070319
  Serious: Yes (Other)
  Sender: FDA-Public Use
  Company Number: CERZ-11410

PATIENT
  Age: 14 Month
  Sex: Male
  Weight: 7.2576 kg

DRUGS (3)
  1. CEREZYME [Suspect]
     Indication: GAUCHER'S DISEASE
     Dosage: 1200 UNITS Q2WKS IV
     Route: 042
     Dates: start: 20060222
  2. XOPENEX [Concomitant]
  3. LACTULOSE [Concomitant]

REACTIONS (4)
  - LARYNGOSPASM [None]
  - LETHARGY [None]
  - NEUROLOGICAL SYMPTOM [None]
  - RESPIRATORY ARREST [None]
